FAERS Safety Report 5215409-6 (Version None)
Quarter: 2007Q1

REPORT INFORMATION
  Report Type: 
  Country: None (occurrence: None)
  Receive Date: 20070117
  Receipt Date: 20070108
  Transmission Date: 20070707
  Serious: Yes (Other)
  Sender: FDA-Public Use
  Company Number: HQWYE210111JAN07

PATIENT

DRUGS (1)
  1. TYGACIL [Suspect]
     Dosage: 50 MG EVERY 12 HOURS, INTRAVENOUS
     Route: 042

REACTIONS (1)
  - PERITONITIS [None]
